FAERS Safety Report 22018365 (Version 2)
Quarter: 2023Q1

REPORT INFORMATION
  Report Type: Report from Study
  Country: JP (occurrence: JP)
  Receive Date: 20230221
  Receipt Date: 20230308
  Transmission Date: 20230417
  Serious: No
  Sender: FDA-Public Use
  Company Number: JP-MSD-LAG010764-003

PATIENT
  Age: 67 Year
  Sex: Female

DRUGS (3)
  1. MOLNUPIRAVIR [Suspect]
     Active Substance: MOLNUPIRAVIR
     Indication: COVID-19 treatment
     Dosage: 800 MILLIGRAM, BID
     Route: 048
     Dates: start: 20221031, end: 20221104
  2. HERBALS [Concomitant]
     Active Substance: HERBALS
     Indication: COVID-19 treatment
     Dosage: UNK
     Route: 065
  3. KIKYOTO [Concomitant]
     Indication: COVID-19 treatment
     Dosage: UNK
     Route: 065

REACTIONS (1)
  - Rash [Unknown]

NARRATIVE: CASE EVENT DATE: 20221109
